FAERS Safety Report 9914565 (Version 1)
Quarter: 2014Q1

REPORT INFORMATION
  Report Type: Spontaneous
  Country: CA (occurrence: CA)
  Receive Date: 20140220
  Receipt Date: 20140220
  Transmission Date: 20141002
  Serious: Yes (Other)
  Sender: FDA-Public Use
  Company Number: PHHY2014CA018423

PATIENT
  Age: 61 Year
  Sex: Male

DRUGS (4)
  1. RASILEZ [Suspect]
     Indication: HYPERTENSION
  2. HYDROCHLOROTHIAZIDE [Suspect]
     Indication: HYPERTENSION
  3. TAMSULOSIN [Concomitant]
     Indication: HYPERTENSION
  4. LERCANIDIPINE [Concomitant]
     Indication: HYPERTENSION

REACTIONS (5)
  - Eosinophilic cellulitis [Unknown]
  - Skin plaque [Recovered/Resolved]
  - Erythema [Recovered/Resolved]
  - Rash [Recovered/Resolved]
  - Dermatitis allergic [Recovered/Resolved]
